FAERS Safety Report 8026770 (Version 4)
Quarter: 2013Q4

REPORT INFORMATION
  Report Type: Spontaneous
  Country: IE (occurrence: IE)
  Receive Date: 20110708
  Receipt Date: 20131105
  Transmission Date: 20140711
  Serious: Yes (Death, Hospitalization)
  Sender: FDA-Public Use
  Company Number: IE-009507513-1107GBR00015

PATIENT
  Age: 76 Year
  Sex: Female
  Weight: 74.4 kg

DRUGS (2)
  1. SINEMET CR [Suspect]
     Indication: PARKINSON^S DISEASE
     Dosage: 1 DF, HS
     Route: 048
  2. SINEMET [Concomitant]
     Indication: PARKINSON^S DISEASE
     Dosage: 12 DF, QD
     Route: 048

REACTIONS (1)
  - Lower respiratory tract infection [Fatal]
